FAERS Safety Report 12520877 (Version 1)
Quarter: 2016Q3

REPORT INFORMATION
  Report Type: Spontaneous
  Country: GB (occurrence: GB)
  Receive Date: 20160701
  Receipt Date: 20160701
  Transmission Date: 20161109
  Serious: Yes (Life-Threatening, Hospitalization, Other)
  Sender: FDA-Public Use
  Company Number: GB-WATSON-2016-14243

PATIENT
  Age: 70 Year
  Sex: Male

DRUGS (3)
  1. TAZOCIN [Suspect]
     Active Substance: PIPERACILLIN SODIUM\TAZOBACTAM SODIUM
     Indication: ANTIBIOTIC PROPHYLAXIS
     Dosage: 4.5 G, UNKNOWN
     Route: 042
     Dates: start: 20160412, end: 20160412
  2. ROCURONIUM [Suspect]
     Active Substance: ROCURONIUM BROMIDE
     Indication: MUSCLE RELAXANT THERAPY
     Dosage: 70 MG, UNKNOWN
     Route: 042
     Dates: start: 20160412, end: 20160412
  3. FENTANYL (UNKNOWN) [Suspect]
     Active Substance: FENTANYL
     Indication: ANALGESIC THERAPY
     Dosage: 100 ?G, UNKNOWN
     Route: 042
     Dates: start: 20160412, end: 20160412

REACTIONS (3)
  - Anaphylactic reaction [Recovered/Resolved with Sequelae]
  - Cardiac arrest [Recovered/Resolved]
  - Pulseless electrical activity [Recovered/Resolved]

NARRATIVE: CASE EVENT DATE: 20160412
